FAERS Safety Report 4654448-0 (Version None)
Quarter: 2005Q2

REPORT INFORMATION
  Report Type: 
  Country: None (occurrence: None)
  Receive Date: 20050506
  Receipt Date: 20050415
  Transmission Date: 20051028
  Serious: Yes (Hospitalization)
  Sender: FDA-Public Use
  Company Number: GB-BOEHRINGER INGELHEIM PHARMACEUTICALS, INC.-2005-UK-00637UK

PATIENT
  Sex: Male

DRUGS (1)
  1. SPIRIVA [Suspect]
     Dates: start: 20030301

REACTIONS (2)
  - BENIGN PROSTATIC HYPERPLASIA [None]
  - URINARY RETENTION [None]
